FAERS Safety Report 7567955-8 (Version None)
Quarter: 2011Q2

REPORT INFORMATION
  Report Type: 
  Country: None (occurrence: None)
  Receive Date: 20110616
  Receipt Date: 20110606
  Transmission Date: 20111010
  Serious: Yes (Disabling)
  Sender: FDA-Public Use
  Company Number: GER/UKI/11/0017614

PATIENT
  Age: 72 Year
  Sex: Male
  Weight: 91.8 kg

DRUGS (8)
  1. FELODIPINE [Suspect]
     Indication: PRODUCT USED FOR UNKNOWN INDICATION
     Dosage: 5 MG, 1 IN 1 D, ORAL
     Route: 048
     Dates: start: 20101219, end: 20110201
  2. ATORVASTATIN [Concomitant]
  3. ALFUZOSIN (ALFUZOSIN) [Concomitant]
  4. LISINOPRIL [Concomitant]
  5. ASPIRIN [Concomitant]
  6. BISOPROLOL FUMARATE [Concomitant]
  7. FINASTERIDE [Concomitant]
  8. AMLODIPINE [Suspect]
     Indication: HYPERTENSION
     Dosage: 10 MG, 1 IN 1 D, ORAL
     Route: 048

REACTIONS (4)
  - MYALGIA [None]
  - DRUG INTERACTION [None]
  - MUSCULOSKELETAL PAIN [None]
  - DRUG PRESCRIBING ERROR [None]
